FAERS Safety Report 22039357 (Version 3)
Quarter: 2023Q1

REPORT INFORMATION
  Report Type: Report from Study
  Country: AU (occurrence: AU)
  Receive Date: 20230227
  Receipt Date: 20230314
  Transmission Date: 20230417
  Serious: Yes (Hospitalization)
  Sender: FDA-Public Use
  Company Number: AU-GLAXOSMITHKLINE-AU2023GSK029519

PATIENT

DRUGS (54)
  1. BELANTAMAB MAFODOTIN [Suspect]
     Active Substance: BELANTAMAB MAFODOTIN
     Indication: Plasma cell myeloma
     Dosage: 20 MG/ML, 1.5 ML VIAL (2.5 MG/KG)
     Route: 042
  2. BORTEZOMIB [Suspect]
     Active Substance: BORTEZOMIB
     Indication: Plasma cell myeloma
     Dosage: UNK
     Route: 065
  3. APIXABAN [Concomitant]
     Active Substance: APIXABAN
     Indication: Atrial fibrillation
     Dosage: 5 MG, BID
     Route: 048
     Dates: start: 201709
  4. APIXABAN [Concomitant]
     Active Substance: APIXABAN
     Indication: Anticoagulant therapy
     Dosage: 5 MG, BID
     Route: 048
     Dates: start: 20221120, end: 20221128
  5. APIXABAN [Concomitant]
     Active Substance: APIXABAN
     Dosage: 5 MG, BID
     Route: 048
     Dates: start: 20230218, end: 20230224
  6. PERINDOPRIL [Concomitant]
     Active Substance: PERINDOPRIL
     Indication: Hypertension
     Dosage: 5 MG, QD
     Route: 048
     Dates: start: 201703
  7. PERINDOPRIL [Concomitant]
     Active Substance: PERINDOPRIL
     Dosage: 4 MG, QD
     Route: 048
     Dates: start: 20230218, end: 20230224
  8. DUTASTERIDE\TAMSULOSIN [Concomitant]
     Active Substance: DUTASTERIDE\TAMSULOSIN
     Indication: Prostatomegaly
     Dosage: 0.5 MG, QD
     Route: 048
     Dates: start: 201809
  9. DUTASTERIDE\TAMSULOSIN [Concomitant]
     Active Substance: DUTASTERIDE\TAMSULOSIN
     Dosage: 500 MICROGRAM
     Route: 048
     Dates: start: 20221121, end: 20221128
  10. VALACYCLOVIR HYDROCHLORIDE [Concomitant]
     Active Substance: VALACYCLOVIR HYDROCHLORIDE
     Indication: Antiviral prophylaxis
     Dosage: 500 MG, QD
     Route: 048
     Dates: start: 20191029
  11. VALACYCLOVIR HYDROCHLORIDE [Concomitant]
     Active Substance: VALACYCLOVIR HYDROCHLORIDE
     Dosage: 500 MG, QD
     Route: 048
     Dates: start: 20221121, end: 20221128
  12. VALACYCLOVIR HYDROCHLORIDE [Concomitant]
     Active Substance: VALACYCLOVIR HYDROCHLORIDE
     Dosage: 500 MG, QD
     Route: 048
     Dates: start: 20230218, end: 20230224
  13. BACTRIM [Concomitant]
     Active Substance: SULFAMETHOXAZOLE\TRIMETHOPRIM
     Indication: Antibiotic prophylaxis
     Dosage: 800 MG, 3 TIMES PER WEEK
     Route: 048
     Dates: start: 20191029
  14. CARMELLOSE EYE DROPS [Concomitant]
     Indication: Prophylaxis
     Dosage: 1 %, Q3H
     Route: 047
     Dates: start: 20191029
  15. CARMELLOSE EYE DROPS [Concomitant]
     Dosage: 0.5 %, QID
     Route: 061
     Dates: start: 20230218, end: 20230224
  16. PANTOPRAZOLE [Concomitant]
     Active Substance: PANTOPRAZOLE
     Indication: Gastrooesophageal reflux prophylaxis
     Dosage: 20 MG, QD
     Route: 048
     Dates: start: 20191029
  17. PANTOPRAZOLE [Concomitant]
     Active Substance: PANTOPRAZOLE
     Dosage: 40 MG, QD
     Route: 048
     Dates: start: 20221121, end: 20221128
  18. PANTOPRAZOLE [Concomitant]
     Active Substance: PANTOPRAZOLE
     Dosage: 40 MG, QD
     Route: 048
     Dates: start: 20230218, end: 20230224
  19. ATENOLOL [Concomitant]
     Active Substance: ATENOLOL
     Indication: Hypertension
     Dosage: 25 MG, QD
     Route: 048
     Dates: start: 201703
  20. LYRICA [Concomitant]
     Active Substance: PREGABALIN
     Indication: Neuralgia
     Dosage: 75 MG, BID
     Route: 048
     Dates: start: 20200213
  21. OXYCODONE HYDROCHLORIDE [Concomitant]
     Active Substance: OXYCODONE HYDROCHLORIDE
     Indication: Neuralgia
     Dosage: 5 MG, PRN
     Route: 048
     Dates: start: 20200102
  22. TAPENTADOL [Concomitant]
     Active Substance: TAPENTADOL
     Indication: Neuralgia
     Dosage: 50 MG, BID
     Route: 048
     Dates: start: 20200203
  23. ACETAMINOPHEN [Concomitant]
     Active Substance: ACETAMINOPHEN
     Indication: Pain management
     Dosage: 1 G, PRN
     Route: 048
     Dates: start: 2016
  24. ACETAMINOPHEN [Concomitant]
     Active Substance: ACETAMINOPHEN
     Indication: Pain prophylaxis
     Dosage: 1 G, QID
     Route: 048
     Dates: start: 20230218, end: 20230222
  25. ACETAMINOPHEN [Concomitant]
     Active Substance: ACETAMINOPHEN
     Dosage: 1 G, QID
     Route: 042
     Dates: start: 20230218, end: 20230220
  26. COLOXYL + SENNA [Concomitant]
     Indication: Constipation prophylaxis
     Dosage: 2 DF (TABLET), PRN
     Route: 048
     Dates: start: 20191206
  27. COLOXYL + SENNA [Concomitant]
     Dosage: 2 DF, BID (TABLET)
     Route: 048
     Dates: start: 20230218, end: 20230224
  28. LACTULOSE [Concomitant]
     Active Substance: LACTULOSE
     Indication: Constipation prophylaxis
     Dosage: 20 ML, PRN
     Route: 048
     Dates: start: 20191207
  29. LACTULOSE [Concomitant]
     Active Substance: LACTULOSE
     Dosage: 20 ML, QD
     Route: 048
     Dates: start: 20221124, end: 20221124
  30. FLECAINIDE [Concomitant]
     Active Substance: FLECAINIDE
     Indication: Atrial fibrillation
     Dosage: 25 MG, BID
     Route: 048
     Dates: start: 202012
  31. FLECAINIDE [Concomitant]
     Active Substance: FLECAINIDE
     Indication: Arrhythmia prophylaxis
     Dosage: 25 MG, QD
     Route: 048
     Dates: start: 20221120, end: 20221128
  32. FLECAINIDE [Concomitant]
     Active Substance: FLECAINIDE
     Dosage: 25 MG, QD
     Route: 048
     Dates: start: 20230218, end: 20230223
  33. FENTANYL [Concomitant]
     Active Substance: FENTANYL
     Indication: Neuralgia
     Dosage: 50 MICROGRAM PER HOUR Q3D
     Route: 061
     Dates: start: 20210212
  34. FENTANYL [Concomitant]
     Active Substance: FENTANYL
     Indication: Product used for unknown indication
     Dosage: 100 UG, SINGLE
     Route: 042
     Dates: start: 20230223, end: 20230223
  35. FENTANYL [Concomitant]
     Active Substance: FENTANYL
     Indication: Pain prophylaxis
     Dosage: 0.83 MICROGRAM PER MINUTE, Q3D, PATCH
     Route: 061
     Dates: start: 20230218, end: 20230224
  36. METOCLOPRAMIDE [Concomitant]
     Active Substance: METOCLOPRAMIDE
     Indication: Antiemetic supportive care
     Dosage: 10 MG, TID
     Route: 048
     Dates: start: 20210428
  37. FUROSEMIDE [Concomitant]
     Active Substance: FUROSEMIDE
     Indication: Diuretic therapy
     Dosage: 20 MG, QD
     Route: 042
     Dates: start: 20221127, end: 20221127
  38. POTASSIUM CHLORIDE [Concomitant]
     Active Substance: POTASSIUM CHLORIDE
     Indication: Metabolic disorder prophylaxis
     Dosage: 1 DF, QD
     Route: 048
     Dates: start: 20221127, end: 20221127
  39. GRANULOCYTE COLONY-STIMULATING FACTOR NOS [Concomitant]
     Active Substance: GRANULOCYTE COLONY-STIMULATING FACTOR NOS
     Indication: White blood cell count increased
     Dosage: 480 MICROGRAM QD
     Route: 058
     Dates: start: 20221127, end: 20221127
  40. PREGABALIN [Concomitant]
     Active Substance: PREGABALIN
     Indication: Neuralgia
     Dosage: 25 MG, BID
     Route: 048
     Dates: start: 20221120, end: 20221128
  41. PREGABALIN [Concomitant]
     Active Substance: PREGABALIN
     Dosage: 25 MG, BID
     Route: 048
     Dates: start: 20230218, end: 20230224
  42. AZITHROMYCIN [Concomitant]
     Active Substance: AZITHROMYCIN
     Indication: Adverse event
     Dosage: 500 MG, QD
     Route: 042
     Dates: start: 20221121, end: 20221127
  43. PIPERACILLIN SODIUM\TAZOBACTAM SODIUM [Concomitant]
     Active Substance: PIPERACILLIN SODIUM\TAZOBACTAM SODIUM
     Indication: Adverse event
     Dosage: 4.5 G, TID
     Route: 042
     Dates: start: 20221121, end: 20221128
  44. SODIUM CHLORIDE [Concomitant]
     Active Substance: SODIUM CHLORIDE
     Indication: Dehydration
     Dosage: 5 ML, BID
     Route: 050
     Dates: start: 20221123, end: 20221124
  45. IPRATROPIUM BROMIDE [Concomitant]
     Active Substance: IPRATROPIUM BROMIDE
     Indication: Dyspnoea
     Dosage: 250 MICROGRAM
     Route: 050
     Dates: start: 20221121, end: 20221128
  46. PIPERACILLIN AND TAZOBACTAM [Concomitant]
     Active Substance: PIPERACILLIN SODIUM\TAZOBACTAM SODIUM
     Indication: Adverse event
     Dosage: 4.5 G, QD
     Route: 042
     Dates: start: 20221121, end: 20221121
  47. PIPERACILLIN AND TAZOBACTAM [Concomitant]
     Active Substance: PIPERACILLIN SODIUM\TAZOBACTAM SODIUM
     Indication: Antibiotic prophylaxis
     Dosage: 4.5 G, TID
     Route: 042
     Dates: start: 20230218, end: 20230223
  48. HYDROCORTISONE [Concomitant]
     Active Substance: HYDROCORTISONE
     Indication: Antiinflammatory therapy
     Dosage: 50 MG, TID
     Route: 042
     Dates: start: 20221120, end: 20221121
  49. MIDAZOLAM [Concomitant]
     Active Substance: MIDAZOLAM
     Indication: Product used for unknown indication
     Dosage: 5 MG, SINGLE
     Route: 042
     Dates: start: 20230223, end: 20230223
  50. FERRIC CARBOXYMALTOSE [Concomitant]
     Active Substance: FERRIC CARBOXYMALTOSE
     Indication: Iron deficiency
     Dosage: 20 MG/KG, SINGLE
     Route: 042
     Dates: start: 20230222, end: 20230222
  51. PREDNISOLONE [Concomitant]
     Active Substance: PREDNISOLONE
     Indication: Prophylaxis
     Dosage: 5 MG, QD
     Route: 048
     Dates: start: 20230223, end: 20230226
  52. DUTASTERIDE AND TAMSULOSIN [Concomitant]
     Indication: Benign prostatic hyperplasia
     Dosage: 500 UG, QD
     Route: 048
     Dates: start: 20230218, end: 20230223
  53. SULFAMETHOXAZOLE\TRIMETHOPRIM [Concomitant]
     Active Substance: SULFAMETHOXAZOLE\TRIMETHOPRIM
     Indication: Antibiotic prophylaxis
     Dosage: 1 DF, QD
     Route: 048
     Dates: start: 20230218, end: 20230224
  54. DEXAMETHASONE [Suspect]
     Active Substance: DEXAMETHASONE

REACTIONS (1)
  - Pneumonia [Not Recovered/Not Resolved]

NARRATIVE: CASE EVENT DATE: 20230219
